FAERS Safety Report 10140826 (Version 5)
Quarter: 2014Q2

REPORT INFORMATION
  Report Type: Spontaneous
  Country: RU (occurrence: RU)
  Receive Date: 20140429
  Receipt Date: 20140612
  Transmission Date: 20141212
  Serious: Yes (Hospitalization, Other)
  Sender: FDA-Public Use
  Company Number: RU-US-EMD SERONO, INC.-7254681

PATIENT
  Age: 33 Year
  Sex: Female

DRUGS (14)
  1. GONAL-F [Suspect]
     Indication: INFERTILITY
     Route: 058
     Dates: start: 20131122, end: 20131129
  2. GONAL-F [Suspect]
     Indication: POLYCYSTIC OVARIES
     Route: 058
     Dates: start: 20131130
  3. GONAL-F [Suspect]
     Dosage: DOSE WAS INCREASED PLUS 250 IU
     Route: 058
     Dates: start: 20131202, end: 20131204
  4. OVITRELLE [Suspect]
     Indication: OVULATION INDUCTION
     Route: 058
     Dates: start: 20131205, end: 20131205
  5. CETROTIDE [Suspect]
     Indication: OVULATION INDUCTION
     Dosage: 0.25 (UNITS UNSPECIFIED)
     Dates: start: 20131130, end: 20131204
  6. MENOPUR                            /01277604/ [Suspect]
     Indication: OVULATION INDUCTION
     Dates: start: 20131129, end: 20131130
  7. MENOPUR                            /01277604/ [Suspect]
     Dates: start: 20131201, end: 20131204
  8. PROGYNOVA                          /00045402/ [Suspect]
     Indication: OVULATION INDUCTION
     Dates: start: 20131202
  9. DOSTINEX [Concomitant]
     Indication: PRODUCT USED FOR UNKNOWN INDICATION
  10. METIPRED                           /00049601/ [Concomitant]
     Indication: PRODUCT USED FOR UNKNOWN INDICATION
  11. ACTOVEGIN [Concomitant]
     Indication: PRODUCT USED FOR UNKNOWN INDICATION
  12. OMEGA 3 [Concomitant]
     Indication: PRODUCT USED FOR UNKNOWN INDICATION
  13. CURANTIL [Concomitant]
     Indication: PRODUCT USED FOR UNKNOWN INDICATION
  14. EUTHYROX [Concomitant]
     Indication: PRODUCT USED FOR UNKNOWN INDICATION
     Dosage: 0.25 (UNITS UNSPECIFIED)

REACTIONS (8)
  - Uterine haemorrhage [Recovered/Resolved]
  - Cervical incompetence [Not Recovered/Not Resolved]
  - Foetal death [Recovered/Resolved]
  - Ovarian hyperstimulation syndrome [Recovered/Resolved]
  - Twin pregnancy [Unknown]
  - Blood pressure increased [Unknown]
  - Oedema [Unknown]
  - Drug ineffective [Recovered/Resolved]
